FAERS Safety Report 6824033-0 (Version None)
Quarter: 2010Q3

REPORT INFORMATION
  Report Type: 
  Country: None (occurrence: None)
  Receive Date: 20100708
  Receipt Date: 20061211
  Transmission Date: 20110219
  Serious: No
  Sender: FDA-Public Use
  Company Number: US-PFIZER INC-2006111659

PATIENT
  Sex: Male
  Weight: 97.52 kg

DRUGS (12)
  1. CHANTIX [Suspect]
     Indication: SMOKING CESSATION THERAPY
     Dates: start: 20060825
  2. CARDURA [Concomitant]
     Indication: HYPERTENSION
  3. CARDURA [Concomitant]
     Indication: PROSTATOMEGALY
  4. ACETYLSALICYLIC ACID [Concomitant]
  5. FLONASE [Concomitant]
  6. VALIUM [Concomitant]
     Indication: SLEEP DISORDER
     Dosage: Q HS
  7. LODINE [Concomitant]
     Indication: TENDONITIS
  8. TESTOSTERONE [Concomitant]
     Dates: end: 20061025
  9. ALL OTHER THERAPEUTIC PRODUCTS [Concomitant]
  10. ADVAIR DISKUS 100/50 [Concomitant]
     Dosage: 250/50
  11. PHENYLTOLOXAMINE [Concomitant]
     Dosage: PRN
  12. DEXAMFETAMINE [Concomitant]

REACTIONS (4)
  - DYSGEUSIA [None]
  - INTENTIONAL DRUG MISUSE [None]
  - MEMORY IMPAIRMENT [None]
  - WEIGHT INCREASED [None]
